FAERS Safety Report 7036830-X (Version None)
Quarter: 2010Q4

REPORT INFORMATION
  Report Type: 
  Country: None (occurrence: None)
  Receive Date: 20101011
  Receipt Date: 20101004
  Transmission Date: 20110411
  Serious: Yes (Hospitalization, Other)
  Sender: FDA-Public Use
  Company Number: US-ELI_LILLY_AND_COMPANY-US201005000729

PATIENT
  Sex: Male
  Weight: 142.86 kg

DRUGS (25)
  1. BYETTA [Suspect]
     Dosage: UNK, UNKNOWN
     Route: 058
     Dates: start: 20040401
  2. NOVOLOG [Concomitant]
     Indication: DIABETES MELLITUS
     Dates: start: 20060218, end: 20060328
  3. HUMALOG [Concomitant]
     Indication: DIABETES MELLITUS
     Dates: start: 20060316, end: 20070413
  4. HUMALOG [Concomitant]
     Dates: start: 20070618, end: 20070723
  5. HUMALOG [Concomitant]
     Dates: start: 20070901, end: 20071005
  6. HUMALOG [Concomitant]
     Dates: start: 20071120
  7. GLIMEPIRIDE [Concomitant]
     Indication: DIABETES MELLITUS
     Dates: start: 20070606, end: 20070707
  8. GLIMEPIRIDE [Concomitant]
     Dates: start: 20070811, end: 20070909
  9. GLIMEPIRIDE [Concomitant]
     Dates: start: 20071005, end: 20071120
  10. CAPTOPRIL [Concomitant]
     Indication: BLOOD PRESSURE
     Dates: start: 20050628, end: 20050801
  11. CAPTOPRIL [Concomitant]
     Dates: start: 20050904, end: 20051104
  12. ATROPINE [Concomitant]
     Indication: BLOOD PRESSURE
     Dates: start: 20051013
  13. LISINOPRIL /USA/ [Concomitant]
     Indication: BLOOD PRESSURE
     Dates: start: 20060205, end: 20060306
  14. LISINOPRIL /USA/ [Concomitant]
     Dates: start: 20060330, end: 20070502
  15. LISINOPRIL /USA/ [Concomitant]
     Dates: start: 20070616, end: 20070712
  16. LISINOPRIL /USA/ [Concomitant]
     Dates: start: 20070811, end: 20070909
  17. LISINOPRIL /USA/ [Concomitant]
     Dates: start: 20071005, end: 20071112
  18. VERAPAMIL [Concomitant]
     Indication: BLOOD PRESSURE
     Dates: start: 20070502, end: 20070521
  19. VERAPAMIL [Concomitant]
     Dates: start: 20070616, end: 20070721
  20. VERAPAMIL [Concomitant]
     Dates: start: 20070901, end: 20071005
  21. VYTORIN [Concomitant]
     Indication: BLOOD CHOLESTEROL
     Dates: start: 20060330, end: 20060502
  22. VYTORIN [Concomitant]
     Dates: start: 20070413, end: 20070502
  23. VYTORIN [Concomitant]
     Dates: start: 20070606, end: 20070712
  24. VYTORIN [Concomitant]
     Dates: start: 20070811, end: 20070909
  25. VYTORIN [Concomitant]
     Dates: start: 20071005, end: 20071110

REACTIONS (3)
  - OFF LABEL USE [None]
  - PANCREATITIS [None]
  - RENAL FAILURE [None]
